FAERS Safety Report 11014668 (Version 2)
Quarter: 2015Q2

REPORT INFORMATION
  Report Type: Spontaneous
  Country: US (occurrence: US)
  Receive Date: 20150412
  Receipt Date: 20150525
  Transmission Date: 20150821
  Serious: No
  Sender: FDA-Public Use
  Company Number: US-JNJFOC-20140402839

PATIENT
  Age: 44 Year
  Sex: Female

DRUGS (18)
  1. GABAPENTIN. [Concomitant]
     Active Substance: GABAPENTIN
     Indication: ADJUVANT THERAPY
     Route: 065
     Dates: start: 201402, end: 201403
  2. GABAPENTIN. [Concomitant]
     Active Substance: GABAPENTIN
     Indication: CONDITION AGGRAVATED
     Route: 065
     Dates: start: 201402, end: 201403
  3. LIDOCAINE. [Concomitant]
     Active Substance: LIDOCAINE
     Indication: ADJUVANT THERAPY
     Route: 065
     Dates: start: 201402, end: 201403
  4. LIDOCAINE. [Concomitant]
     Active Substance: LIDOCAINE
     Indication: CONDITION AGGRAVATED
     Route: 065
     Dates: start: 201402, end: 201403
  5. AMITRIPTYLINE [Concomitant]
     Active Substance: AMITRIPTYLINE
     Indication: ADJUVANT THERAPY
     Route: 065
     Dates: start: 201402, end: 201403
  6. NABUMETONE. [Concomitant]
     Active Substance: NABUMETONE
     Indication: CONDITION AGGRAVATED
     Route: 065
     Dates: start: 201402, end: 201403
  7. MAGNESIUM [Concomitant]
     Active Substance: MAGNESIUM
     Indication: CONDITION AGGRAVATED
     Route: 065
     Dates: start: 201402, end: 201403
  8. KETAMINE [Concomitant]
     Active Substance: KETAMINE
     Indication: ADJUVANT THERAPY
     Route: 065
     Dates: start: 201402, end: 201403
  9. AMITRIPTYLINE [Concomitant]
     Active Substance: AMITRIPTYLINE
     Indication: CONDITION AGGRAVATED
     Route: 065
     Dates: start: 201402, end: 201403
  10. PREDNISONE. [Concomitant]
     Active Substance: PREDNISONE
     Indication: ADJUVANT THERAPY
     Route: 065
     Dates: start: 20140203, end: 20140210
  11. PREDNISONE. [Concomitant]
     Active Substance: PREDNISONE
     Indication: CONDITION AGGRAVATED
     Route: 065
     Dates: start: 20140203, end: 20140210
  12. DYCLONINE [Concomitant]
     Active Substance: DYCLONINE
     Route: 065
     Dates: end: 201403
  13. NABUMETONE. [Concomitant]
     Active Substance: NABUMETONE
     Indication: ADJUVANT THERAPY
     Route: 065
     Dates: start: 201402, end: 201403
  14. PRILOCAINE [Concomitant]
     Active Substance: PRILOCAINE
     Indication: ADJUVANT THERAPY
     Route: 065
     Dates: start: 201402, end: 201403
  15. MAGNESIUM [Concomitant]
     Active Substance: MAGNESIUM
     Indication: ADJUVANT THERAPY
     Route: 065
     Dates: start: 201402, end: 201403
  16. PRILOCAINE [Concomitant]
     Active Substance: PRILOCAINE
     Indication: CONDITION AGGRAVATED
     Route: 065
     Dates: start: 201402, end: 201403
  17. TRAMADOL [Suspect]
     Active Substance: TRAMADOL
     Indication: PAIN
     Route: 048
  18. KETAMINE [Concomitant]
     Active Substance: KETAMINE
     Indication: CONDITION AGGRAVATED
     Route: 065
     Dates: start: 201402, end: 201403

REACTIONS (1)
  - Drug ineffective [Unknown]
